FAERS Safety Report 9972799 (Version 1)
Quarter: 2014Q1

REPORT INFORMATION
  Report Type: Spontaneous
  Country: US (occurrence: US)
  Receive Date: 20140306
  Receipt Date: 20140306
  Transmission Date: 20141002
  Serious: No
  Sender: FDA-Public Use
  Company Number: US-PFIZER INC-2014060089

PATIENT
  Sex: Female

DRUGS (1)
  1. ADVIL ALLERGY AND CONGESTION RELIEF [Suspect]
     Dosage: ONE TABLET, ONCE
     Route: 048
     Dates: start: 201402, end: 201402

REACTIONS (8)
  - Expired drug administered [Unknown]
  - Poor quality drug administered [Unknown]
  - Abdominal pain upper [Unknown]
  - Pruritus [Unknown]
  - Oropharyngeal pain [Unknown]
  - Cough [Unknown]
  - Dyspnoea [Unknown]
  - Product quality issue [Unknown]
